FAERS Safety Report 7229143-4 (Version None)
Quarter: 2011Q1

REPORT INFORMATION
  Report Type: 
  Country: None (occurrence: None)
  Receive Date: 20110117
  Receipt Date: 20110107
  Transmission Date: 20110831
  Serious: Yes (Other)
  Sender: FDA-Public Use
  Company Number: JP-JNJFOC-20101103784

PATIENT
  Age: 31 Year
  Sex: Female
  Weight: 97 kg

DRUGS (9)
  1. CYCLOSPORINE [Concomitant]
     Indication: PUSTULAR PSORIASIS
     Route: 048
  2. BASEN [Concomitant]
     Indication: DIABETES MELLITUS
     Route: 048
  3. OXAROL [Concomitant]
     Indication: PUSTULAR PSORIASIS
     Dosage: RIGHT EYE
     Route: 047
  4. DERMOVATE [Concomitant]
     Indication: PUSTULAR PSORIASIS
     Dosage: RIGHT EYE
     Route: 047
  5. LIPITOR [Concomitant]
     Indication: HYPERLIPIDAEMIA
     Route: 048
  6. REMICADE [Suspect]
     Indication: PUSTULAR PSORIASIS
     Route: 042
  7. HYDROCORTISONE BUTYRATE [Concomitant]
     Indication: PUSTULAR PSORIASIS
     Dosage: RIGHT EYE
     Route: 047
  8. GLYCORAN [Concomitant]
     Indication: DIABETES MELLITUS
     Route: 048
  9. REMICADE [Suspect]
     Route: 042

REACTIONS (6)
  - INFUSION RELATED REACTION [None]
  - OXYGEN SATURATION DECREASED [None]
  - CHEST DISCOMFORT [None]
  - DYSPNOEA [None]
  - MALAISE [None]
  - ANAPHYLACTOID REACTION [None]
